FAERS Safety Report 4582344-6 (Version None)
Quarter: 2005Q1

REPORT INFORMATION
  Report Type: 
  Country: None (occurrence: None)
  Receive Date: 20050118
  Receipt Date: 20040802
  Transmission Date: 20050727
  Serious: Yes (Hospitalization)
  Sender: FDA-Public Use
  Company Number: 376656

PATIENT
  Age: 36 Year
  Sex: Female
  Weight: 80 kg

DRUGS (2)
  1. ROCEPHIN [Suspect]
     Indication: EMPTY SELLA SYNDROME
     Dosage: 2 PER DAY INTRAVENOUS
     Route: 042
     Dates: start: 20040604, end: 20040714
  2. ROCEPHIN [Suspect]
     Indication: HYPOTHALAMO-PITUITARY DISORDERS
     Dosage: 2 PER DAY INTRAVENOUS
     Route: 042
     Dates: start: 20040604, end: 20040714

REACTIONS (5)
  - CANDIDIASIS [None]
  - COLITIS [None]
  - FEBRILE NEUTROPENIA [None]
  - LIVER FUNCTION TEST ABNORMAL [None]
  - NEUTROPENIA [None]
